FAERS Safety Report 15880441 (Version 1)
Quarter: 2019Q1

REPORT INFORMATION
  Report Type: Spontaneous
  Country: US (occurrence: US)
  Receive Date: 20190128
  Receipt Date: 20190128
  Transmission Date: 20190417
  Serious: Yes (Hospitalization)
  Sender: FDA-Public Use
  Company Number: None

PATIENT
  Age: 64 Year
  Sex: Male
  Weight: 115.65 kg

DRUGS (20)
  1. AZITHROMYCIN TABLETS, USP [Suspect]
     Active Substance: AZITHROMYCIN
     Indication: WHEEZING
     Dosage: ?          QUANTITY:6 TABLET(S);?
     Route: 048
     Dates: start: 20190124, end: 20190126
  2. AZITHROMYCIN TABLETS, USP [Suspect]
     Active Substance: AZITHROMYCIN
     Indication: COUGH
     Dosage: ?          QUANTITY:6 TABLET(S);?
     Route: 048
     Dates: start: 20190124, end: 20190126
  3. PROTONIX [Concomitant]
     Active Substance: PANTOPRAZOLE SODIUM
  4. PROSCAR [Concomitant]
     Active Substance: FINASTERIDE
  5. ZANTAC [Concomitant]
     Active Substance: RANITIDINE HYDROCHLORIDE
  6. CHERRY TART TABLETS [Concomitant]
  7. MECLIZINE [Concomitant]
     Active Substance: MECLIZINE HYDROCHLORIDE
  8. METOPROLOL. [Concomitant]
     Active Substance: METOPROLOL
  9. NORVASC [Concomitant]
     Active Substance: AMLODIPINE BESYLATE
  10. PREDNISONE. [Concomitant]
     Active Substance: PREDNISONE
  11. MVI [Concomitant]
     Active Substance: VITAMINS
  12. MUCINEX [Concomitant]
     Active Substance: GUAIFENESIN
  13. CARDURA [Concomitant]
     Active Substance: DOXAZOSIN MESYLATE
  14. LIPITOR [Concomitant]
     Active Substance: ATORVASTATIN CALCIUM
  15. BABY ASA [Concomitant]
     Active Substance: ASPIRIN
  16. CLARITIN [Concomitant]
     Active Substance: LORATADINE
  17. MEGA REDS [Concomitant]
  18. VITAMIN D3 [Concomitant]
     Active Substance: CHOLECALCIFEROL
  19. COLD CALM [Concomitant]
  20. VALIUM [Concomitant]
     Active Substance: DIAZEPAM

REACTIONS (6)
  - Balance disorder [None]
  - Drug ineffective [None]
  - Vertigo [None]
  - Wheezing [None]
  - Vomiting [None]
  - Nystagmus [None]

NARRATIVE: CASE EVENT DATE: 20190126
